FAERS Safety Report 5590324-7 (Version None)
Quarter: 2008Q1

REPORT INFORMATION
  Report Type: 
  Country: None (occurrence: None)
  Receive Date: 20080109
  Receipt Date: 20071231
  Transmission Date: 20080703
  Serious: Yes (Other)
  Sender: FDA-Public Use
  Company Number: 2008000039

PATIENT
  Age: 21 Year
  Sex: Male
  Weight: 76.2 kg

DRUGS (2)
  1. ROGAINE 5 [Suspect]
     Indication: ALOPECIA
     Dosage: CAPFUL 2 TIMES A DAY, TOPICAL
     Route: 061
     Dates: start: 20071217, end: 20071227
  2. ACCUTANE [Suspect]
     Indication: ACNE
     Dosage: 30 MG ONCE A DAY

REACTIONS (2)
  - PETIT MAL EPILEPSY [None]
  - REFUSAL OF TREATMENT BY PATIENT [None]
